FAERS Safety Report 8005721-X (Version None)
Quarter: 2011Q4

REPORT INFORMATION
  Report Type: 
  Country: None (occurrence: None)
  Receive Date: 20111223
  Receipt Date: 20111222
  Transmission Date: 20120403
  Serious: Yes (Hospitalization, Disabling)
  Sender: FDA-Public Use
  Company Number: GXKR2011DE003664

PATIENT

DRUGS (10)
  1. OMEPRAZOLE [Concomitant]
     Route: 048
  2. GABAPENTIN [Suspect]
     Indication: NEUROPATHY PERIPHERAL
     Dosage: 600 MG, TID
     Route: 048
     Dates: end: 20110725
  3. OLMESARTAN MEDOXOMIL [Concomitant]
  4. DURAGESIC-100 [Concomitant]
  5. SIMVASTATIN [Concomitant]
     Indication: HYPERLIPIDAEMIA
     Dosage: 40 MG
     Route: 048
     Dates: end: 20110727
  6. AMITRIPTYLINE [Concomitant]
  7. MARCUMAR [Concomitant]
  8. OLMESARTAN MEDOXOMIL AND HYDROCHLOROTHIZIDE [Concomitant]
     Indication: HYPERTENSION
     Dosage: 1 DF, QD
     Route: 048
     Dates: end: 20110727
  9. OXYCODONE HYDROCHLORIDE [Concomitant]
  10. METOPROLOL SUCCINATE [Concomitant]

REACTIONS (1)
  - RHABDOMYOLYSIS [None]
